FAERS Safety Report 15848633 (Version 1)
Quarter: 2019Q1

REPORT INFORMATION
  Report Type: Spontaneous
  Country: AL (occurrence: AL)
  Receive Date: 20190121
  Receipt Date: 20190121
  Transmission Date: 20190417
  Serious: Yes (Hospitalization)
  Sender: FDA-Public Use
  Company Number: AL-NOVAST LABORATORIES, LTD-AL-2019NOV000008

PATIENT
  Age: 36 Year
  Sex: Female

DRUGS (2)
  1. GESTODENE [Suspect]
     Active Substance: GESTODENE
     Indication: OVARIAN CYST
     Dosage: 70 ?G, 24 CYCLES
     Route: 048
  2. LEVONEST [Suspect]
     Active Substance: ETHINYL ESTRADIOL\LEVONORGESTREL
     Indication: OVARIAN CYST
     Dosage: 30 ?G (OF ETHINYLESTRADIOL), 24 CYCLES
     Route: 048

REACTIONS (3)
  - Vertebral artery dissection [Recovered/Resolved]
  - Cerebellar artery thrombosis [Recovered/Resolved]
  - Intracranial aneurysm [Recovered/Resolved]
